FAERS Safety Report 7434002-8 (Version None)
Quarter: 2011Q2

REPORT INFORMATION
  Report Type: 
  Country: None (occurrence: None)
  Receive Date: 20110425
  Receipt Date: 20081001
  Transmission Date: 20111010
  Serious: Yes (Death, Hospitalization, Other)
  Sender: FDA-Public Use
  Company Number: US-BAYER-200836272NA

PATIENT
  Age: 84 Year
  Sex: Female
  Weight: 49.887 kg

DRUGS (15)
  1. PRAVACHOL [Concomitant]
     Dosage: 20 MG, QD
     Route: 048
  2. AMOXICILLIN [Concomitant]
     Dosage: 500 MG, UNK
     Route: 048
     Dates: start: 20030621
  3. RED BLOOD CELLS [Concomitant]
     Dosage: 4 U, UNK
     Dates: start: 20030723
  4. COREG [Concomitant]
     Dosage: 125 MG, QD
     Route: 048
     Dates: start: 20030703
  5. PLATELETS [Concomitant]
     Dosage: 20 U, UNK
     Dates: start: 20030722
  6. TRASYLOL [Suspect]
     Indication: MITRAL VALVE REPLACEMENT
     Dosage: UNK
     Dates: start: 20030804
  7. SPIRONOLACTONE [Concomitant]
     Dosage: 12.5 MG, QD
     Route: 048
     Dates: start: 20030703
  8. FUROSEMIDE [Concomitant]
     Dosage: 60 MG, QD
     Route: 048
     Dates: start: 20030718
  9. SYNTHROID [Concomitant]
     Dosage: UNK
     Dates: start: 20030621
  10. LANOXIN [Concomitant]
     Dosage: 0.125 MG, QD
  11. CIPRO [Concomitant]
     Dosage: 500 MG, UNK
     Route: 048
     Dates: start: 20030324
  12. NIASPAN [Concomitant]
     Dosage: 500 MG, UNK
     Route: 048
  13. ASPIRIN [Concomitant]
  14. ATACAND [Concomitant]
     Dosage: 15 MG, QD
     Route: 048
     Dates: start: 20030715
  15. ASPIRIN [Concomitant]

REACTIONS (11)
  - EMOTIONAL DISTRESS [None]
  - FEAR [None]
  - ANXIETY [None]
  - PAIN [None]
  - INJURY [None]
  - UNEVALUABLE EVENT [None]
  - CEREBROVASCULAR ACCIDENT [None]
  - STRESS [None]
  - CARDIAC FAILURE CONGESTIVE [None]
  - DEATH [None]
  - ANHEDONIA [None]
